FAERS Safety Report 6122771-9 (Version None)
Quarter: 2009Q1

REPORT INFORMATION
  Report Type: 
  Country: None (occurrence: None)
  Receive Date: 20090318
  Receipt Date: 20090317
  Transmission Date: 20090719
  Serious: Yes (Death)
  Sender: FDA-Public Use
  Company Number: US-ASTRAZENECA-2009UW06878

PATIENT
  Age: 22 Year
  Sex: Male

DRUGS (4)
  1. SEROQUEL [Suspect]
     Route: 048
  2. PAXIL [Suspect]
     Route: 065
  3. KLONOPIN [Suspect]
     Route: 065
  4. PAIN KILLERS [Suspect]
     Route: 065

REACTIONS (1)
  - DEATH [None]
